FAERS Safety Report 8450603-2 (Version None)
Quarter: 2012Q2

REPORT INFORMATION
  Report Type: 
  Country: None (occurrence: None)
  Receive Date: 20120620
  Receipt Date: 20120614
  Transmission Date: 20120825
  Serious: Yes (Other)
  Sender: FDA-Public Use
  Company Number: PHHY2012CA052387

PATIENT

DRUGS (1)
  1. TASIGNA [Suspect]

REACTIONS (1)
  - APHASIA [None]
